FAERS Safety Report 7684923-6 (Version None)
Quarter: 2011Q3

REPORT INFORMATION
  Report Type: 
  Country: None (occurrence: None)
  Receive Date: 20110816
  Receipt Date: 20110811
  Transmission Date: 20111222
  Serious: Yes (Other)
  Sender: FDA-Public Use
  Company Number: US-AMGEN-USASP2011037704

PATIENT
  Sex: Female

DRUGS (3)
  1. NPLATE [Suspect]
     Indication: IDIOPATHIC THROMBOCYTOPENIC PURPURA
     Dosage: 360 A?G, QWK
     Route: 058
     Dates: start: 20060201
  2. VALERIAN 2000 COMPLEX [Concomitant]
     Indication: SLEEP DISORDER
     Dosage: UNK UNK, QD
  3. MULTIVITAMIN                       /00097801/ [Concomitant]
     Indication: GENERAL PHYSICAL CONDITION
     Dosage: UNK UNK, QD

REACTIONS (1)
  - BIOPSY BONE MARROW ABNORMAL [None]
